FAERS Safety Report 19722289 (Version 1)
Quarter: 2021Q3

REPORT INFORMATION
  Report Type: Spontaneous
  Country: US (occurrence: US)
  Receive Date: 20210819
  Receipt Date: 20210819
  Transmission Date: 20211014
  Serious: Yes (Hospitalization)
  Sender: FDA-Public Use
  Company Number: US-PFIZER INC-2019086786

PATIENT
  Age: 68 Year
  Sex: Male

DRUGS (2)
  1. RAPAMUNE [Suspect]
     Active Substance: SIROLIMUS
     Dosage: 1 TABLET ON SATURDAY AND SUNDAY EVERY DAY
     Dates: start: 20170524
  2. RAPAMUNE [Suspect]
     Active Substance: SIROLIMUS
     Indication: RENAL TRANSPLANT
     Dosage: 1 MG 2 TAB(S) MON TO FRI AND 1 TAB ON SAT + SUN ORALLY, ONCE A DAY
     Route: 048
     Dates: start: 20170524

REACTIONS (3)
  - Peripheral swelling [Unknown]
  - Pneumonia [Unknown]
  - Pleural effusion [Unknown]
